FAERS Safety Report 19719785 (Version 1)
Quarter: 2021Q3

REPORT INFORMATION
  Report Type: Spontaneous
  Country: CZ (occurrence: CZ)
  Receive Date: 20210818
  Receipt Date: 20210818
  Transmission Date: 20211014
  Serious: Yes (Life-Threatening, Hospitalization, Disabling, Other)
  Sender: FDA-Public Use
  Company Number: CZ-MYLANLABS-2021M1051978

PATIENT
  Age: 75 Year
  Sex: Female
  Weight: 45 kg

DRUGS (12)
  1. ZOLPIDEM                           /00914902/ [Suspect]
     Active Substance: ZOLPIDEM TARTRATE
     Indication: PRODUCT USED FOR UNKNOWN INDICATION
     Dosage: 10 MILLIGRAM, QD (SHE IS REGULARLY OVERDOSING HERSELF WITH 10 ? 15 TABLETS)
     Route: 048
     Dates: start: 201903
  2. OXAZEPAM. [Concomitant]
     Active Substance: OXAZEPAM
     Dosage: 5 MILLIGRAM (0,5 ? 0,5 ? 0 ? 0)
  3. ZOLPIDEM 10 MG FILM?COATED TABLETS [Suspect]
     Active Substance: ZOLPIDEM TARTRATE
     Indication: PRODUCT USED FOR UNKNOWN INDICATION
     Dosage: 10 MILLIGRAM (SHE IS REGULARLY OVERDOSING HERSELF WITH 10 ? 15 TABLETS)
  4. BURONIL [Concomitant]
     Active Substance: MELPERONE HYDROCHLORIDE
     Dosage: 25 MILLIGRAM, QD (SUB14503MIG)
  5. PANCREOLAN [Concomitant]
     Dosage: 6000 INTERNATIONAL UNIT
  6. MIRTAZAPIN SANDOZ [Concomitant]
     Dosage: 15 MILLIGRAM, QD
  7. SERTRALIN VIPHARM [Concomitant]
     Dosage: 50 MILLIGRAM, QD
  8. EUTHYROX [Concomitant]
     Active Substance: LEVOTHYROXINE SODIUM
     Dosage: 150 MILLIGRAM, QD
  9. ESPUMISAN                          /06269601/ [Concomitant]
     Dosage: 40 MILLIGRAM (TAKE WITH GREAT BLOATING)
  10. IBUMAX [Concomitant]
     Active Substance: IBUPROFEN
     Indication: PRODUCT USED FOR UNKNOWN INDICATION
     Dosage: 400 MILLIGRAM, Q4H (FOR BACK PAIN UP TO 4 TABLETS AFTER 4 HOURS PER DAY)
  11. XALATAN [Concomitant]
     Active Substance: LATANOPROST
     Dosage: 0.05 MILLIGRAM PER MILLILITRE, QD
  12. HELICID                            /00661201/ [Concomitant]
     Active Substance: OMEPRAZOLE
     Dosage: 20 MILLIGRAM (1 TABLET DUE TO HEARBURN, MAX 1 A DAY)

REACTIONS (5)
  - Disorientation [Not Recovered/Not Resolved]
  - Balance disorder [Not Recovered/Not Resolved]
  - Malaise [Not Recovered/Not Resolved]
  - Arthralgia [Not Recovered/Not Resolved]
  - Back pain [Not Recovered/Not Resolved]

NARRATIVE: CASE EVENT DATE: 2019
